FAERS Safety Report 5492543-7 (Version None)
Quarter: 2007Q4

REPORT INFORMATION
  Report Type: 
  Country: None (occurrence: None)
  Receive Date: 20071022
  Receipt Date: 20071010
  Transmission Date: 20080405
  Serious: Yes (Hospitalization)
  Sender: FDA-Public Use
  Company Number: US-SHR-US-2007-031270

PATIENT
  Age: 75 Year
  Sex: Male

DRUGS (12)
  1. BETASERON [Suspect]
     Route: 058
     Dates: start: 20070804, end: 20070817
  2. BETASERON [Suspect]
     Dosage: 4 MIU, EVERY 2D
     Route: 058
     Dates: start: 20070101
  3. BETASERON [Suspect]
     Dosage: 6 MIU, EVERY 2D
     Route: 058
     Dates: start: 20070101
  4. ALL OTHER THERAPEUTIC PRODUCTS [Concomitant]
  5. ETODOLAC [Concomitant]
  6. AMLODIPINE W/BENAZEPRIL [Concomitant]
  7. BACLOFEN [Concomitant]
  8. AMANTADINE HCL [Concomitant]
  9. METHOTREXATE [Concomitant]
  10. FOLIC ACID [Concomitant]
  11. ^SULFAMETH-EMP^ [Concomitant]
  12. TRIAMTERENE AND HYDROCHLOROTHIAZID ^HARRIS^ [Concomitant]

REACTIONS (6)
  - CONSTIPATION [None]
  - DEPRESSION [None]
  - DIZZINESS [None]
  - INGUINAL HERNIA [None]
  - NAUSEA [None]
  - VOMITING [None]
